FAERS Safety Report 16664132 (Version 2)
Quarter: 2019Q3

REPORT INFORMATION
  Report Type: Spontaneous
  Country: LT (occurrence: LT)
  Receive Date: 20190802
  Receipt Date: 20190808
  Transmission Date: 20191004
  Serious: Yes (Hospitalization)
  Sender: FDA-Public Use
  Company Number: PHHY2019LT175716

PATIENT
  Age: 52 Year
  Sex: Female

DRUGS (7)
  1. TIAPRIDE [Suspect]
     Active Substance: TIAPRIDE
     Indication: PSYCHOTIC DISORDER
     Dosage: 400 MG, QD
     Route: 048
  2. OLANZAPINE. [Suspect]
     Active Substance: OLANZAPINE
     Indication: PSYCHOTIC DISORDER
     Dosage: 5 MG, QD
     Route: 048
  3. QUETIAPINE. [Suspect]
     Active Substance: QUETIAPINE
     Indication: PSYCHOTIC DISORDER
     Dosage: 25 MG, QD
     Route: 048
  4. TIAPRIDE [Suspect]
     Active Substance: TIAPRIDE
     Dosage: 200 MG, QD
     Route: 048
  5. OLANZAPINE. [Suspect]
     Active Substance: OLANZAPINE
     Dosage: 10 MG, QD
     Route: 048
  6. HALOPERIDOL. [Suspect]
     Active Substance: HALOPERIDOL
     Indication: PSYCHOTIC DISORDER
     Dosage: 5 MG, UNK
     Route: 030
  7. OLANZAPINE. [Suspect]
     Active Substance: OLANZAPINE
     Dosage: 15 MG, QW
     Route: 048

REACTIONS (23)
  - Aggression [Unknown]
  - Grandiosity [Recovered/Resolved]
  - Disturbance in attention [Unknown]
  - Memory impairment [Unknown]
  - Mania [Unknown]
  - Acute psychosis [Unknown]
  - Screaming [Unknown]
  - Inappropriate affect [Unknown]
  - Asthenia [Unknown]
  - Food refusal [Unknown]
  - Psychomotor hyperactivity [Unknown]
  - Hallucination, auditory [Unknown]
  - Depression [Unknown]
  - Neurosyphilis [Unknown]
  - Euphoric mood [Unknown]
  - Feeling of despair [Unknown]
  - Anxiety [Unknown]
  - Personality change [Unknown]
  - Cognitive disorder [Unknown]
  - Delusion [Unknown]
  - Illness anxiety disorder [Unknown]
  - Psychotic symptom [Recovered/Resolved]
  - Drug ineffective for unapproved indication [Unknown]
